FAERS Safety Report 17439742 (Version 2)
Quarter: 2020Q2

REPORT INFORMATION
  Report Type: Report from Study
  Country: PE (occurrence: PE)
  Receive Date: 20200220
  Receipt Date: 20200507
  Transmission Date: 20200713
  Serious: Yes (Congenital Anomaly, Other)
  Sender: FDA-Public Use
  Company Number: PE-GLAXOSMITHKLINE-A1054177A

PATIENT
  Age: 0 Day
  Sex: Male
  Weight: 1.9 kg

DRUGS (4)
  1. TENOFOVIR DISOPROXIL FUMARATE. [Suspect]
     Active Substance: TENOFOVIR DISOPROXIL FUMARATE
     Indication: HIV INFECTION
     Dosage: 300 MG, QD
     Route: 064
     Dates: start: 20121108
  2. LAMIVUDINE. [Suspect]
     Active Substance: LAMIVUDINE
     Indication: HIV INFECTION
     Dosage: 300 MG
     Route: 064
     Dates: start: 20121108
  3. INTELENCE [Suspect]
     Active Substance: ETRAVIRINE
     Indication: HIV INFECTION
     Dosage: 400 MG, 1D
     Route: 064
     Dates: start: 20121108, end: 20130531
  4. KALETRA [Suspect]
     Active Substance: LOPINAVIR\RITONAVIR
     Indication: HIV INFECTION
     Dosage: 800 MG, 1D
     Route: 064
     Dates: start: 20130531

REACTIONS (4)
  - Premature baby [Unknown]
  - Foetal exposure during pregnancy [Unknown]
  - Low birth weight baby [Unknown]
  - Neonatal respiratory distress syndrome [Unknown]

NARRATIVE: CASE EVENT DATE: 20131110
